FAERS Safety Report 9444102 (Version 4)
Quarter: 2013Q3

REPORT INFORMATION
  Report Type: Spontaneous
  Country: JP (occurrence: JP)
  Receive Date: 20130807
  Receipt Date: 20130905
  Transmission Date: 20140515
  Serious: Yes (Disabling)
  Sender: FDA-Public Use
  Company Number: JP-ASTRAZENECA-2013SE59697

PATIENT
  Age: 70 Year
  Sex: Male

DRUGS (4)
  1. ZOLADEX [Suspect]
     Indication: PROSTATE CANCER
     Route: 058
     Dates: start: 20110105, end: 20110720
  2. ZOLADEX [Suspect]
     Indication: PROSTATE CANCER
     Route: 058
     Dates: start: 20130524, end: 20130723
  3. ODYNE [Concomitant]
     Indication: PROSTATE CANCER
     Route: 048
     Dates: start: 20130524
  4. URSO [Concomitant]
     Indication: PROSTATE CANCER
     Route: 048
     Dates: start: 20130524

REACTIONS (1)
  - Retinal artery occlusion [Not Recovered/Not Resolved]
